FAERS Safety Report 7725661-0 (Version None)
Quarter: 2011Q3

REPORT INFORMATION
  Report Type: 
  Country: None (occurrence: None)
  Receive Date: 20110902
  Receipt Date: 20110818
  Transmission Date: 20111222
  Serious: Yes (Other)
  Sender: FDA-Public Use
  Company Number: PHFR2011GB04912

PATIENT
  Sex: Female

DRUGS (1)
  1. TEGRETOL [Suspect]
     Indication: EPILEPSY

REACTIONS (4)
  - VERTIGO [None]
  - VITAMIN D DECREASED [None]
  - LIMB DISCOMFORT [None]
  - MENIERE'S DISEASE [None]
